FAERS Safety Report 24679369 (Version 3)
Quarter: 2024Q4

REPORT INFORMATION
  Report Type: Report from Study
  Country: CN (occurrence: CN)
  Receive Date: 20241129
  Receipt Date: 20241226
  Transmission Date: 20250115
  Serious: Yes (Hospitalization)
  Sender: ACCORD
  Company Number: CN-HENLIUS-24CN018087

PATIENT
  Age: 40 Year
  Sex: Female

DRUGS (6)
  1. TRASTUZUMAB [Suspect]
     Active Substance: TRASTUZUMAB
     Indication: Breast cancer stage IV
     Dosage: STRENGTH: 150 MG?8 MG/KG (INITIAL DOSE), 6 MG/KG (SUBSEQUENT DOSES), Q3W, IV DRIP
     Route: 042
     Dates: start: 20240920, end: 20241122
  2. DOCETAXEL [Suspect]
     Active Substance: DOCETAXEL
     Indication: Breast cancer stage IV
     Dosage: 75 MILLIGRAM/SQ. METER, Q3W, IV DRIP
     Route: 042
     Dates: start: 20240920, end: 20241122
  3. PERTUZUMAB [Suspect]
     Active Substance: PERTUZUMAB
     Indication: Breast cancer stage IV
     Dosage: 820 MILLIGRAM, Q3W, IV DRIP
     Route: 042
     Dates: start: 20240920, end: 20240920
  4. PERTUZUMAB [Suspect]
     Active Substance: PERTUZUMAB
     Indication: Metastases to liver
     Dosage: 820 MILLIGRAM, Q3W, IV DRIP
     Route: 042
     Dates: start: 20240920, end: 20240920
  5. DOCETAXEL [Suspect]
     Active Substance: DOCETAXEL
     Indication: Metastases to liver
     Dosage: 75 MILLIGRAM/SQ. METER, Q3W, IV DRIP
     Route: 042
     Dates: start: 20240920, end: 20241122
  6. PERTUZUMAB [Suspect]
     Active Substance: PERTUZUMAB
     Indication: Breast cancer stage IV
     Dosage: 420 MILLIGRAM, Q3W, IV DRIP
     Route: 042
     Dates: start: 20241011, end: 20241122

REACTIONS (1)
  - Venous thrombosis limb [Not Recovered/Not Resolved]

NARRATIVE: CASE EVENT DATE: 20241107
